FAERS Safety Report 15640760 (Version 1)
Quarter: 2018Q4

REPORT INFORMATION
  Report Type: Spontaneous
  Country: US (occurrence: US)
  Receive Date: 20181120
  Receipt Date: 20181120
  Transmission Date: 20190205
  Serious: No
  Sender: FDA-Public Use
  Company Number: US-PFIZER INC-2018465508

PATIENT
  Age: 46 Year
  Sex: Female
  Weight: 73.47 kg

DRUGS (1)
  1. GENOTROPIN MQ [Suspect]
     Active Substance: SOMATROPIN
     Indication: BLOOD GROWTH HORMONE
     Dosage: 1 MG, DAILY

REACTIONS (3)
  - Pain in extremity [Unknown]
  - Musculoskeletal pain [Unknown]
  - Neuralgia [Unknown]
